FAERS Safety Report 5499149-4 (Version None)
Quarter: 2007Q4

REPORT INFORMATION
  Report Type: 
  Country: None (occurrence: None)
  Receive Date: 20071026
  Receipt Date: 20071016
  Transmission Date: 20080405
  Serious: Yes (Hospitalization, Disabling)
  Sender: FDA-Public Use
  Company Number: FR-BAYER-200710597BFR

PATIENT
  Age: 54 Year
  Sex: Male

DRUGS (5)
  1. NEXAVAR [Suspect]
     Indication: UNEVALUABLE EVENT
     Route: 048
     Dates: start: 20070301, end: 20071002
  2. TRILEPTAL [Concomitant]
     Indication: UNEVALUABLE EVENT
     Dosage: UNIT DOSE: 150 MG
     Route: 048
  3. KETOPROFEN [Concomitant]
     Indication: UNEVALUABLE EVENT
  4. LIORESAL [Concomitant]
     Indication: UNEVALUABLE EVENT
  5. SKENAN [Concomitant]
     Indication: UNEVALUABLE EVENT
     Dosage: TOTAL DAILY DOSE: 240 MG
     Route: 048

REACTIONS (3)
  - BONE INFARCTION [None]
  - BONE PAIN [None]
  - PAIN IN EXTREMITY [None]
